FAERS Safety Report 4856129-7 (Version None)
Quarter: 2005Q4

REPORT INFORMATION
  Report Type: 
  Country: None (occurrence: None)
  Receive Date: 20051216
  Receipt Date: 20051005
  Transmission Date: 20060501
  Serious: Yes (Death)
  Sender: FDA-Public Use
  Company Number: US-MERCK-0510USA04486

PATIENT
  Age: 45 Year
  Sex: Male

DRUGS (19)
  1. CLARINEX [Concomitant]
     Route: 065
  2. ATUSS MS [Concomitant]
     Route: 065
  3. CIPRO [Concomitant]
     Route: 065
  4. PYRIDIUM [Concomitant]
     Route: 065
  5. PANLOR SS [Concomitant]
     Route: 065
  6. LORCET-HD [Concomitant]
     Route: 065
  7. AMPICILLIN [Concomitant]
     Route: 065
  8. ZOVIRAX [Concomitant]
     Route: 065
  9. XYLOCAINE [Concomitant]
     Route: 065
  10. DECADRON (DEXAMETHASONE ACETATE) [Concomitant]
     Route: 065
  11. VIOXX [Suspect]
     Indication: PAIN
     Route: 048
  12. PREVACID [Concomitant]
     Indication: REFLUX OESOPHAGITIS
     Route: 065
  13. DEMEROL [Concomitant]
     Route: 065
  14. ZYDONE [Concomitant]
     Route: 065
  15. VISTARIL [Concomitant]
     Route: 065
  16. ZANAFLEX [Concomitant]
     Route: 065
  17. DARVOCET-N 100 [Concomitant]
     Route: 065
  18. BEXTRA [Concomitant]
     Route: 065
     Dates: start: 20030124, end: 20030201
  19. TEQUIN [Concomitant]
     Route: 065

REACTIONS (7)
  - CYSTITIS [None]
  - GROIN PAIN [None]
  - MONARTHRITIS [None]
  - MYOCARDIAL INFARCTION [None]
  - SINUSITIS [None]
  - TENDONITIS [None]
  - TRACHEOBRONCHITIS [None]
